FAERS Safety Report 22170224 (Version 8)
Quarter: 2024Q3

REPORT INFORMATION
  Report Type: Spontaneous
  Country: AT (occurrence: AT)
  Receive Date: 20230404
  Receipt Date: 20240925
  Transmission Date: 20241017
  Serious: Yes (Other)
  Sender: NOVARTIS
  Company Number: AT-ROCHE-3313527

PATIENT
  Age: 60 Year
  Sex: Female
  Weight: 86 kg

DRUGS (75)
  1. CAPECITABINE [Suspect]
     Active Substance: CAPECITABINE
     Indication: HER2 positive breast cancer
     Dosage: 500 MG, OTHER (MOST RECENT DOSE PRIOR TO THE EVENT: 30 DEC 2021)
     Route: 048
     Dates: start: 20210618, end: 20210924
  2. CAPECITABINE [Suspect]
     Active Substance: CAPECITABINE
     Dosage: 500 MG, OTHER
     Route: 048
     Dates: end: 20210924
  3. CAPECITABINE [Suspect]
     Active Substance: CAPECITABINE
     Dosage: 500 MG, OTHER
     Route: 048
     Dates: start: 20210924
  4. CAPECITABINE [Suspect]
     Active Substance: CAPECITABINE
     Dosage: 500 MG, OTHER
     Route: 048
     Dates: start: 20211230
  5. CAPECITABINE [Suspect]
     Active Substance: CAPECITABINE
     Dosage: UNK
     Route: 065
  6. LETROZOLE [Suspect]
     Active Substance: LETROZOLE
     Indication: HER2 positive breast cancer
     Dosage: 2.5 MG, QD (MOST RECENT DOSE PRIOR TO THE EVENT: 09 NOV 2020)
     Route: 048
     Dates: start: 20200210, end: 20200907
  7. LETROZOLE [Suspect]
     Active Substance: LETROZOLE
     Dosage: 3 MG, QD
     Route: 048
     Dates: start: 20201109
  8. TAMOXIFEN [Suspect]
     Active Substance: TAMOXIFEN
     Indication: HER2 positive breast cancer
     Dosage: 20 MG,QD (MOST RECENT DOSE PRIOR TO AE 04 MAR 2021))
     Route: 048
     Dates: start: 20210112
  9. TAMOXIFEN [Suspect]
     Active Substance: TAMOXIFEN
     Dosage: 20 MG, QD
     Route: 048
     Dates: start: 20210304
  10. TRASTUZUMAB [Suspect]
     Active Substance: TRASTUZUMAB
     Indication: HER2 positive breast cancer
     Dosage: 1800 MG, QW (600 MG, TIW (MOST RECENT DOSE PRIOR TO THE EVENT: 28/OCT/2021) (SUBDERMAL)
     Route: 058
     Dates: start: 20210618, end: 20210910
  11. PERTUZUMAB [Suspect]
     Active Substance: PERTUZUMAB
     Indication: HER2 positive breast cancer
     Dosage: 840 MG, Q3W (MOST RECENT DOSE PRIOR TO THE EVENT: 3/JAN/2020)
     Route: 042
     Dates: start: 20191014
  12. PERTUZUMAB [Suspect]
     Active Substance: PERTUZUMAB
     Dosage: 2520 MG, QW (840 MG, TIW)
     Route: 042
  13. PERTUZUMAB [Suspect]
     Active Substance: PERTUZUMAB
     Dosage: 2520 MG, QW (840 MG, TIW)
     Route: 042
  14. PERTUZUMAB [Suspect]
     Active Substance: PERTUZUMAB
     Dosage: 2520 MG, QW (840 MG, Q3W (MOST RECENT DOSE PRIOR TO THE EVENT: 3/JAN/2020)
     Route: 042
     Dates: start: 20191014, end: 20191014
  15. PERTUZUMAB [Suspect]
     Active Substance: PERTUZUMAB
     Dosage: 840 MG, Q3W
     Route: 042
     Dates: start: 20200103
  16. TUCATINIB [Suspect]
     Active Substance: TUCATINIB
     Indication: HER2 positive breast cancer
     Dosage: 300 MG (MOST RECENT DOSE PRIOR TO THE EVENT: 21/JAN/2022)
     Route: 048
     Dates: start: 20210618, end: 20211001
  17. TUCATINIB [Suspect]
     Active Substance: TUCATINIB
     Dosage: 300 MG
     Route: 048
     Dates: start: 20220121
  18. ADO-TRASTUZUMAB EMTANSINE [Suspect]
     Active Substance: ADO-TRASTUZUMAB EMTANSINE
     Indication: HER2 positive breast cancer
     Dosage: 306 MG, Q3W
     Route: 042
     Dates: start: 20210316, end: 20210520
  19. ADO-TRASTUZUMAB EMTANSINE [Suspect]
     Active Substance: ADO-TRASTUZUMAB EMTANSINE
     Dosage: 918 MG, 306 MG, Q3W (IV DRIP)
     Route: 042
     Dates: start: 20210316, end: 20210520
  20. NOVALGIN [Concomitant]
     Indication: Chest pain
     Dosage: UNK (ONGOING)
     Route: 065
     Dates: start: 20200724
  21. PASSEDAN [Concomitant]
     Indication: Product used for unknown indication
     Dosage: UNK
     Route: 065
     Dates: start: 20191010
  22. BISOPROLOL FUMARATE [Concomitant]
     Active Substance: BISOPROLOL FUMARATE
     Indication: Product used for unknown indication
     Dosage: UNK (ONGOING: NOT CHECKED)
     Route: 065
     Dates: end: 20220715
  23. BISOPROLOL FUMARATE [Concomitant]
     Active Substance: BISOPROLOL FUMARATE
     Dosage: UNK (ONGOING: NOT CHECKED)
     Route: 065
     Dates: end: 20220715
  24. BISOPROLOL FUMARATE [Concomitant]
     Active Substance: BISOPROLOL FUMARATE
     Dosage: UNK (ONGOING: NOT CHECKED)
     Route: 065
     Dates: end: 20220715
  25. BISOPROLOL FUMARATE [Concomitant]
     Active Substance: BISOPROLOL FUMARATE
     Dosage: UNK
     Route: 065
     Dates: end: 20220715
  26. VITAMINS WITH MINERALS [Concomitant]
     Active Substance: MINERALS\VITAMINS
     Indication: Product used for unknown indication
     Dosage: UNK (ONGOING: CHECKED)
     Route: 065
  27. VITAMINS WITH MINERALS [Concomitant]
     Active Substance: MINERALS\VITAMINS
     Dosage: UNK (ONGOING: CHECKED)
     Route: 065
  28. VITAMINS WITH MINERALS [Concomitant]
     Active Substance: MINERALS\VITAMINS
     Dosage: UNK (ONGOING: CHECKED)
     Route: 065
  29. VITAMINS WITH MINERALS [Concomitant]
     Active Substance: MINERALS\VITAMINS
     Dosage: UNK (ONGOING: CHECKED)
     Route: 065
  30. VITAMINS WITH MINERALS [Concomitant]
     Active Substance: MINERALS\VITAMINS
     Dosage: UNK (ONGOING: CHECKED)
     Route: 065
  31. VITAMINS WITH MINERALS [Concomitant]
     Active Substance: MINERALS\VITAMINS
     Dosage: UNK (ONGOING: CHECKED)
     Route: 065
  32. VITAMINS WITH MINERALS [Concomitant]
     Active Substance: MINERALS\VITAMINS
     Dosage: UNK (ONGOING: CHECKED)
     Route: 065
  33. POLYETHYLENE GLYCOL 3350\POTASSIUM CHLORIDE\SODIUM BICARBONATE\SODIUM [Concomitant]
     Active Substance: POLYETHYLENE GLYCOL 3350\POTASSIUM CHLORIDE\SODIUM BICARBONATE\SODIUM CHLORIDE
     Indication: Product used for unknown indication
     Dosage: UNK
     Route: 065
     Dates: start: 20191015
  34. VENLAFAXINE HYDROCHLORIDE [Concomitant]
     Active Substance: VENLAFAXINE HYDROCHLORIDE
     Indication: Product used for unknown indication
     Dosage: UNK
     Route: 065
  35. VENLAFAXINE HYDROCHLORIDE [Concomitant]
     Active Substance: VENLAFAXINE HYDROCHLORIDE
     Dosage: UNK (ONGOING: CHECKED)
     Route: 065
  36. VENLAFAXINE HYDROCHLORIDE [Concomitant]
     Active Substance: VENLAFAXINE HYDROCHLORIDE
     Dosage: UNK (ONGOING: CHECKED)
     Route: 065
  37. VENLAFAXINE HYDROCHLORIDE [Concomitant]
     Active Substance: VENLAFAXINE HYDROCHLORIDE
     Dosage: UNK
     Route: 065
  38. LOPERAMIDE HYDROCHLORIDE [Concomitant]
     Active Substance: LOPERAMIDE HYDROCHLORIDE
     Indication: Diarrhoea
     Dosage: UNK
     Route: 065
     Dates: start: 20191024
  39. TRAZODONE HYDROCHLORIDE [Concomitant]
     Active Substance: TRAZODONE HYDROCHLORIDE
     Indication: Product used for unknown indication
     Dosage: UNK
     Route: 065
  40. TRAZODONE HYDROCHLORIDE [Concomitant]
     Active Substance: TRAZODONE HYDROCHLORIDE
     Dosage: UNK (ONGOING:CHECKED)
     Route: 065
  41. TRAZODONE HYDROCHLORIDE [Concomitant]
     Active Substance: TRAZODONE HYDROCHLORIDE
     Dosage: UNK (ONGOING:CHECKED)
     Route: 065
  42. TRAZODONE HYDROCHLORIDE [Concomitant]
     Active Substance: TRAZODONE HYDROCHLORIDE
     Dosage: UNK
     Route: 065
  43. SIMVASTATIN [Concomitant]
     Active Substance: SIMVASTATIN
     Indication: Product used for unknown indication
     Dosage: UNK
     Route: 065
  44. SIMVASTATIN [Concomitant]
     Active Substance: SIMVASTATIN
     Dosage: UNK
     Route: 065
  45. SIMVASTATIN [Concomitant]
     Active Substance: SIMVASTATIN
     Dosage: UNK
     Route: 065
  46. SIMVASTATIN [Concomitant]
     Active Substance: SIMVASTATIN
     Dosage: UNK
     Route: 065
  47. PASPERTIN [Concomitant]
     Indication: Product used for unknown indication
     Dosage: UNK
     Route: 065
     Dates: start: 20191015
  48. PANTOPRAZOLE SODIUM [Concomitant]
     Active Substance: PANTOPRAZOLE SODIUM
     Indication: Product used for unknown indication
     Dosage: UNK
     Route: 065
  49. PANTOPRAZOLE SODIUM [Concomitant]
     Active Substance: PANTOPRAZOLE SODIUM
     Dosage: UNK
     Route: 065
  50. PANTOPRAZOLE SODIUM [Concomitant]
     Active Substance: PANTOPRAZOLE SODIUM
     Dosage: UNK
     Route: 065
  51. PANTOPRAZOLE SODIUM [Concomitant]
     Active Substance: PANTOPRAZOLE SODIUM
     Dosage: UNK
     Route: 065
  52. ACEMIN [Concomitant]
     Indication: Product used for unknown indication
     Dosage: UNK (ONGOING = NOT CHECKED)
     Route: 065
     Dates: end: 20220715
  53. ACEMIN [Concomitant]
     Dosage: UNK
     Route: 065
     Dates: end: 20220715
  54. LAFENE [Concomitant]
     Indication: Product used for unknown indication
     Dosage: UNK
     Route: 065
     Dates: start: 20220115
  55. OLODATEROL HYDROCHLORIDE\TIOTROPIUM BROMIDE MONOHYDRATE [Concomitant]
     Active Substance: OLODATEROL HYDROCHLORIDE\TIOTROPIUM BROMIDE MONOHYDRATE
     Indication: Product used for unknown indication
     Dosage: UNK
     Route: 065
  56. OLODATEROL HYDROCHLORIDE\TIOTROPIUM BROMIDE MONOHYDRATE [Concomitant]
     Active Substance: OLODATEROL HYDROCHLORIDE\TIOTROPIUM BROMIDE MONOHYDRATE
     Dosage: UNK
     Route: 065
  57. OLODATEROL HYDROCHLORIDE\TIOTROPIUM BROMIDE MONOHYDRATE [Concomitant]
     Active Substance: OLODATEROL HYDROCHLORIDE\TIOTROPIUM BROMIDE MONOHYDRATE
     Dosage: UNK
     Route: 065
  58. OLODATEROL HYDROCHLORIDE\TIOTROPIUM BROMIDE MONOHYDRATE [Concomitant]
     Active Substance: OLODATEROL HYDROCHLORIDE\TIOTROPIUM BROMIDE MONOHYDRATE
     Dosage: UNK
     Route: 065
  59. BEROTEC [Concomitant]
     Active Substance: FENOTEROL HYDROBROMIDE
     Indication: Product used for unknown indication
     Dosage: UNK
     Route: 065
  60. BEROTEC [Concomitant]
     Active Substance: FENOTEROL HYDROBROMIDE
     Dosage: UNK (ONGOING:CHECKED)
     Route: 065
  61. BEROTEC [Concomitant]
     Active Substance: FENOTEROL HYDROBROMIDE
     Dosage: UNK (ONGOING:CHECKED)
     Route: 065
  62. BEROTEC [Concomitant]
     Active Substance: FENOTEROL HYDROBROMIDE
     Dosage: UNK
     Route: 065
  63. ROFLUMILAST [Concomitant]
     Active Substance: ROFLUMILAST
     Indication: Product used for unknown indication
     Dosage: UNK
     Route: 065
  64. ROFLUMILAST [Concomitant]
     Active Substance: ROFLUMILAST
     Dosage: UNK
     Route: 065
  65. ROFLUMILAST [Concomitant]
     Active Substance: ROFLUMILAST
     Dosage: UNK
     Route: 065
  66. ROFLUMILAST [Concomitant]
     Active Substance: ROFLUMILAST
     Dosage: UNK
     Route: 065
  67. DILTIAZEM [Concomitant]
     Active Substance: DILTIAZEM
     Indication: Product used for unknown indication
     Dosage: UNK (ONGOING: NOT CHECKED)
     Route: 065
     Dates: end: 20220715
  68. DILTIAZEM [Concomitant]
     Active Substance: DILTIAZEM
     Dosage: UNK (ONGOING: NOT CHECKED)
     Route: 065
     Dates: end: 20220715
  69. DILTIAZEM [Concomitant]
     Active Substance: DILTIAZEM
     Dosage: UNK (ONGOING: NOT CHECKED)
     Route: 065
     Dates: end: 20220715
  70. DILTIAZEM [Concomitant]
     Active Substance: DILTIAZEM
     Dosage: UNK (ONGOING: NOT CHECKED)
     Route: 065
     Dates: end: 20220715
  71. DILTIAZEM [Concomitant]
     Active Substance: DILTIAZEM
     Dosage: UNK (ONGOING: NOT CHECKED)
     Route: 065
     Dates: end: 20220715
  72. ALVESCO [Concomitant]
     Active Substance: CICLESONIDE
     Indication: Product used for unknown indication
     Dosage: UNK (ONGOING)
     Route: 065
  73. ALVESCO [Concomitant]
     Active Substance: CICLESONIDE
     Dosage: UNK (ONGOING)
     Route: 065
  74. ALVESCO [Concomitant]
     Active Substance: CICLESONIDE
     Dosage: UNK (ONGOING)
     Route: 065
  75. HYDROMORPHONE HYDROCHLORIDE [Concomitant]
     Active Substance: HYDROMORPHONE HYDROCHLORIDE
     Indication: Product used for unknown indication
     Dosage: UNK
     Route: 065
     Dates: start: 20211230

REACTIONS (1)
  - Seizure [Recovered/Resolved]

NARRATIVE: CASE EVENT DATE: 20220315
